FAERS Safety Report 18764481 (Version 3)
Quarter: 2022Q2

REPORT INFORMATION
  Report Type: Report from Study
  Country: US (occurrence: US)
  Receive Date: 20210120
  Receipt Date: 20220524
  Transmission Date: 20220720
  Serious: Yes (Hospitalization)
  Sender: FDA-Public Use
  Company Number: US-NOVARTISPH-NVSC2021US009272

PATIENT
  Age: 63 Year
  Sex: Female
  Weight: 54.422 kg

DRUGS (4)
  1. TREPROSTINIL [Suspect]
     Active Substance: TREPROSTINIL
     Indication: Pulmonary arterial hypertension
     Dosage: 170 NG/KG/MIN, CONT
     Route: 042
     Dates: start: 20190418
  2. TREPROSTINIL [Suspect]
     Active Substance: TREPROSTINIL
     Dosage: 170 NG/KG/MIN, CONT
     Route: 065
  3. TRACLEER [Concomitant]
     Active Substance: BOSENTAN
     Indication: Product used for unknown indication
     Dosage: UNK
     Route: 065
  4. COUMADIN [Concomitant]
     Active Substance: WARFARIN SODIUM
     Indication: Product used for unknown indication
     Dosage: UNK
     Route: 065

REACTIONS (5)
  - Device malfunction [Unknown]
  - Feeling abnormal [Unknown]
  - Dizziness [Unknown]
  - Device leakage [Recovered/Resolved]
  - Device leakage [Unknown]

NARRATIVE: CASE EVENT DATE: 20210107
